FAERS Safety Report 24956597 (Version 7)
Quarter: 2025Q2

REPORT INFORMATION
  Report Type: Spontaneous
  Country: US (occurrence: US)
  Receive Date: 20250211
  Receipt Date: 20250425
  Transmission Date: 20250717
  Serious: No
  Sender: PFIZER
  Company Number: US-PFIZER INC-202500023904

PATIENT
  Age: 12 Year
  Sex: Male

DRUGS (4)
  1. GENOTROPIN [Suspect]
     Active Substance: SOMATROPIN
     Indication: Short stature
     Dosage: 1.0MG ALTERNATING WITH 1.2MG, 6 DAYS PER WEEK
  2. GENOTROPIN [Suspect]
     Active Substance: SOMATROPIN
     Dosage: 1.0MG ALTERNATING WITH 1.2MG, 6 DAYS PER WEEK
  3. GENOTROPIN [Suspect]
     Active Substance: SOMATROPIN
     Dosage: ALTERNATE 1.6 MG AND 1.4 MG QOD (EVERY OTHER DAY) FOR AN AVERAGE OF 1.5 MG/DAY 6 DAYS/WK
  4. GENOTROPIN [Suspect]
     Active Substance: SOMATROPIN
     Dosage: ALTERNATE 1.6 MG AND 1.4 MG QOD (EVERY OTHER DAY) FOR AN AVERAGE OF 1.5 MG/DAY 6 DAYS/WK

REACTIONS (2)
  - Device mechanical issue [Unknown]
  - Device defective [Unknown]
